FAERS Safety Report 8067199-X (Version None)
Quarter: 2012Q1

REPORT INFORMATION
  Report Type: 
  Country: None (occurrence: None)
  Receive Date: 20120124
  Receipt Date: 20111220
  Transmission Date: 20120608
  Serious: Yes (Other)
  Sender: FDA-Public Use
  Company Number: US-GLAXOSMITHKLINE-A0958820A

PATIENT
  Age: 76 Year
  Sex: Female

DRUGS (5)
  1. BATH OIL (UNSPECIFIED) [Suspect]
  2. WYTENSIN [Concomitant]
  3. TYKERB [Suspect]
     Indication: BREAST CANCER
     Dosage: 1250MG PER DAY
     Route: 048
     Dates: start: 20111220
  4. METFORMIN HYDROCHLORIDE [Concomitant]
  5. SPIRONOLACTONE [Concomitant]

REACTIONS (10)
  - DIARRHOEA [None]
  - CHILLS [None]
  - DEHYDRATION [None]
  - PALMAR-PLANTAR ERYTHRODYSAESTHESIA SYNDROME [None]
  - BLISTER [None]
  - EYE IRRITATION [None]
  - PRURITUS [None]
  - NAUSEA [None]
  - STOMATITIS [None]
  - ABDOMINAL PAIN UPPER [None]
